FAERS Safety Report 4840373-9 (Version None)
Quarter: 2005Q4

REPORT INFORMATION
  Report Type: 
  Country: None (occurrence: None)
  Receive Date: 20051025
  Receipt Date: 20040920
  Transmission Date: 20060501
  Serious: Yes (Hospitalization)
  Sender: FDA-Public Use
  Company Number: 2004-BP-02830BP

PATIENT
  Age: 91 Year
  Sex: Female

DRUGS (5)
  1. COMBIVENT [Suspect]
     Dosage: 8 PUF (SEE TEXT,2 PUFFS Q6H),IH
     Dates: start: 20040408
  2. LOMOTIL [Concomitant]
  3. VERAPAMIL [Concomitant]
  4. ALLOPURINOL [Concomitant]
  5. ADVAIR DISKUS 100/50 [Concomitant]

REACTIONS (2)
  - DRUG INEFFECTIVE [None]
  - DYSPNOEA [None]
